FAERS Safety Report 9088013 (Version 1)
Quarter: 2013Q1

REPORT INFORMATION
  Report Type: Report from Study
  Country: DE (occurrence: DE)
  Receive Date: 20130218
  Receipt Date: 20130218
  Transmission Date: 20140127
  Serious: Yes (Other)
  Sender: FDA-Public Use
  Company Number: DE-ABBOTT-13P-062-1050361-00

PATIENT
  Age: 38 Year
  Sex: Male

DRUGS (3)
  1. HUMIRA [Suspect]
     Indication: REITER^S SYNDROME
     Route: 058
     Dates: start: 200804, end: 201110
  2. PANTOPRAZOLE [Concomitant]
     Indication: PRODUCT USED FOR UNKNOWN INDICATION
  3. ARCOXIA [Concomitant]
     Indication: PRODUCT USED FOR UNKNOWN INDICATION
     Dosage: NOT REPORTED

REACTIONS (7)
  - Hepatic enzyme increased [Recovered/Resolved]
  - Diarrhoea [Recovered/Resolved]
  - Vomiting [Recovered/Resolved]
  - Blood test abnormal [Recovered/Resolved]
  - Rash [Recovered/Resolved]
  - Ocular hyperaemia [Recovered/Resolved]
  - Off label use [Unknown]
